FAERS Safety Report 20430324 (Version 1)
Quarter: 2022Q1

REPORT INFORMATION
  Report Type: Other
  Country: CA (occurrence: CA)
  Receive Date: 20220204
  Receipt Date: 20220204
  Transmission Date: 20220424
  Serious: Yes (Hospitalization, Other)
  Sender: FDA-Public Use
  Company Number: CA-APOTEX-2022AP002855

PATIENT
  Age: 82 Year
  Sex: Female

DRUGS (2)
  1. CLOPIDOGREL [Suspect]
     Active Substance: CLOPIDOGREL BISULFATE
     Indication: Coagulopathy
     Dosage: UNK
     Route: 065
  2. MEPOLIZUMAB [Suspect]
     Active Substance: MEPOLIZUMAB
     Indication: Asthma
     Dosage: 100 MILLIGRAM
     Route: 058

REACTIONS (7)
  - Anaemia [Unknown]
  - Blood potassium increased [Unknown]
  - Diarrhoea haemorrhagic [Unknown]
  - Melaena [Unknown]
  - Oesophageal dysplasia [Unknown]
  - Gastrointestinal haemorrhage [Unknown]
  - Diarrhoea [Unknown]
